FAERS Safety Report 5121822-8 (Version None)
Quarter: 2006Q4

REPORT INFORMATION
  Report Type: 
  Country: None (occurrence: None)
  Receive Date: 20061006
  Receipt Date: 20060928
  Transmission Date: 20070319
  Serious: Yes (Hospitalization)
  Sender: FDA-Public Use
  Company Number: US-ROCHE-465509

PATIENT
  Age: 44 Year
  Sex: Female

DRUGS (6)
  1. PEGASYS [Suspect]
     Indication: HEPATITIS C
     Dosage: AFTER THE SECOND INJECTION THE THERAPY WAS DISCONTINUED.
     Route: 065
     Dates: start: 20060824, end: 20060912
  2. COPEGUS [Suspect]
     Indication: HEPATITIS C
     Route: 065
     Dates: start: 20060824, end: 20060912
  3. PAXIL [Concomitant]
     Indication: DEPRESSION
  4. TOPAMAX [Concomitant]
     Indication: DEPRESSION
  5. VALIUM [Concomitant]
     Indication: DEPRESSION
  6. INHALER NOS [Concomitant]
     Indication: CHRONIC OBSTRUCTIVE PULMONARY DISEASE

REACTIONS (5)
  - DECREASED APPETITE [None]
  - DYSGEUSIA [None]
  - FOOT FRACTURE [None]
  - POSTOPERATIVE INFECTION [None]
  - WEIGHT DECREASED [None]
